FAERS Safety Report 9085421 (Version 1)
Quarter: 2013Q1

REPORT INFORMATION
  Report Type: Report from Study
  Country: US (occurrence: US)
  Receive Date: 20130131
  Receipt Date: 20130131
  Transmission Date: 20140127
  Serious: No
  Sender: FDA-Public Use
  Company Number: US-ABBOTT-12P-163-1003853-00

PATIENT
  Age: 26 Year
  Sex: Female

DRUGS (6)
  1. HUMIRA [Suspect]
     Indication: ANKYLOSING SPONDYLITIS
     Route: 058
     Dates: start: 201109, end: 201201
  2. HUMIRA [Suspect]
     Dates: start: 201206
  3. PREDNISONE [Suspect]
     Indication: PRODUCT USED FOR UNKNOWN INDICATION
  4. CARDIZEM [Concomitant]
     Indication: SUPRAVENTRICULAR TACHYCARDIA
     Dosage: AT NIGHT
  5. FLECAINIDE [Concomitant]
     Indication: ARRHYTHMIA PROPHYLAXIS
     Dosage: ONE TWICE A DAY
  6. AMBIEN [Concomitant]
     Indication: INSOMNIA
     Dosage: AT NIGHT

REACTIONS (1)
  - Hepatic adenoma [Recovered/Resolved]
